FAERS Safety Report 17134004 (Version 3)
Quarter: 2020Q1

REPORT INFORMATION
  Report Type: Spontaneous
  Country: PT (occurrence: PT)
  Receive Date: 20191210
  Receipt Date: 20200128
  Transmission Date: 20200409
  Serious: Yes (Other)
  Sender: FDA-Public Use
  Company Number: PT-ACCORD-164975

PATIENT
  Age: 50 Year
  Sex: Female

DRUGS (10)
  1. CYCLOPHOSPHAMIDE/CYCLOPHOSPHAMIDE MONOHYDRATE [Suspect]
     Active Substance: CYCLOPHOSPHAMIDE
     Indication: BURKITT^S LEUKAEMIA
     Dosage: 3 CYCLES
     Route: 037
     Dates: start: 201812
  2. DEXAMETHASONE. [Suspect]
     Active Substance: DEXAMETHASONE
     Indication: BURKITT^S LEUKAEMIA
     Dosage: 3 CYCLES
     Route: 037
     Dates: start: 201812
  3. LAMIVUDINE. [Concomitant]
     Active Substance: LAMIVUDINE
     Indication: ANTIRETROVIRAL THERAPY
  4. RITUXIMAB. [Suspect]
     Active Substance: RITUXIMAB
     Indication: BURKITT^S LEUKAEMIA
     Dosage: 3 CYCLES
     Route: 037
     Dates: start: 201812
  5. VINCRISTINE [Suspect]
     Active Substance: VINCRISTINE
     Indication: BURKITT^S LEUKAEMIA
     Dosage: 3 CYCLES
     Route: 037
     Dates: start: 201812
  6. ABACAVIR. [Concomitant]
     Active Substance: ABACAVIR
     Indication: ANTIRETROVIRAL THERAPY
  7. DOXORUBICIN [Suspect]
     Active Substance: DOXORUBICIN
     Indication: BURKITT^S LEUKAEMIA
     Dosage: 3 CYCLES
     Route: 037
     Dates: start: 201812
  8. CYTARABINE/CYTARABINE HYDROCHLORIDE/CYTARABINE OCFOSFATE [Suspect]
     Active Substance: CYTARABINE
     Indication: BURKITT^S LEUKAEMIA
     Dosage: 3 CYCLES
     Route: 037
     Dates: start: 201812
  9. METHOTREXATE. [Suspect]
     Active Substance: METHOTREXATE
     Indication: BURKITT^S LEUKAEMIA
     Dosage: 3 CYCLES
     Route: 037
     Dates: start: 201812
  10. DOLUTEGRAVIR [Concomitant]
     Active Substance: DOLUTEGRAVIR
     Indication: ANTIRETROVIRAL THERAPY
     Route: 065

REACTIONS (8)
  - Areflexia [Recovering/Resolving]
  - Myelitis [Recovered/Resolved]
  - Hypoaesthesia [Recovering/Resolving]
  - Urinary incontinence [Recovering/Resolving]
  - Spinal cord injury [Recovering/Resolving]
  - Paraparesis [Recovering/Resolving]
  - Myelopathy [Recovering/Resolving]
  - Anal incontinence [Recovering/Resolving]

NARRATIVE: CASE EVENT DATE: 201812
